FAERS Safety Report 10676195 (Version 2)
Quarter: 2015Q1

REPORT INFORMATION
  Report Type: Spontaneous
  Country: DE (occurrence: DE)
  Receive Date: 20141226
  Receipt Date: 20150107
  Transmission Date: 20150720
  Serious: Yes (Other)
  Sender: FDA-Public Use
  Company Number: DE-CIPLA LTD.-2014DE02882

PATIENT

DRUGS (6)
  1. ETOPOSIDE. [Suspect]
     Active Substance: ETOPOSIDE
     Indication: LUNG NEOPLASM MALIGNANT
  2. IFOSAMIDE [Suspect]
     Active Substance: IFOSFAMIDE
     Indication: NEPHROBLASTOMA
     Dosage: CUMULATIVE DOSE OF 12 G/M2
  3. ETOPOSIDE. [Suspect]
     Active Substance: ETOPOSIDE
     Indication: NEPHROBLASTOMA
     Dosage: 200 MG/M2, DAY 7 TO DAY 3
  4. IFOSAMIDE [Suspect]
     Active Substance: IFOSFAMIDE
     Indication: LUNG NEOPLASM MALIGNANT
  5. CARBOPLATIN. [Suspect]
     Active Substance: CARBOPLATIN
     Indication: NEPHROBLASTOMA
     Dosage: DOSE CALCULATED GLOMERULAR FILTRATION RATE BY DAY 7 TO 3
  6. CARBOPLATIN. [Suspect]
     Active Substance: CARBOPLATIN
     Indication: LUNG NEOPLASM MALIGNANT

REACTIONS (4)
  - Cardiac failure [Unknown]
  - Acute kidney injury [Recovered/Resolved]
  - Epistaxis [Unknown]
  - Pericardial effusion [Unknown]
